FAERS Safety Report 9805821 (Version 3)
Quarter: 2014Q1

REPORT INFORMATION
  Report Type: Report from Study
  Country: US (occurrence: US)
  Receive Date: 20140109
  Receipt Date: 20140305
  Transmission Date: 20141002
  Serious: Yes (Other)
  Sender: FDA-Public Use
  Company Number: PHEH2014US000656

PATIENT
  Sex: Female

DRUGS (2)
  1. ZORTRESS [Suspect]
     Indication: LIVER TRANSPLANT
     Dosage: 1.5 MG, BID
     Route: 048
     Dates: start: 201112
  2. ZORTRESS [Suspect]
     Dosage: 0.75 MG, BID
     Route: 048

REACTIONS (4)
  - Upper limb fracture [Recovered/Resolved]
  - Dysgraphia [Unknown]
  - Confusional state [Recovered/Resolved]
  - Malaise [Recovered/Resolved]
